FAERS Safety Report 13231898 (Version 1)
Quarter: 2017Q1

REPORT INFORMATION
  Report Type: Spontaneous
  Country: US (occurrence: US)
  Receive Date: 20170214
  Receipt Date: 20170214
  Transmission Date: 20170428
  Serious: Yes (Life-Threatening, Hospitalization, Other)
  Sender: FDA-Public Use
  Company Number: US-VALIDUS PHARMACEUTICALS LLC-US-2017VAL000205

PATIENT

DRUGS (1)
  1. DESIPRAMINE HYDROCHLORIDE. [Suspect]
     Active Substance: DESIPRAMINE HYDROCHLORIDE
     Indication: DEPRESSION
     Dosage: UNK
     Route: 065

REACTIONS (5)
  - Overdose [Unknown]
  - Pulmonary oedema [Unknown]
  - Seizure [Unknown]
  - Drug level increased [Unknown]
  - Electrocardiogram QRS complex prolonged [Unknown]
